FAERS Safety Report 4586668-8 (Version None)
Quarter: 2005Q1

REPORT INFORMATION
  Report Type: 
  Country: None (occurrence: None)
  Receive Date: 20050218
  Receipt Date: 20041104
  Transmission Date: 20050727
  Serious: No
  Sender: FDA-Public Use
  Company Number: US-BRISTOL-MYERS SQUIBB COMPANY-12755989

PATIENT
  Age: 53 Year
  Sex: Female
  Weight: 71 kg

DRUGS (4)
  1. TAXOL [Suspect]
     Indication: OVARIAN CANCER
     Route: 042
     Dates: start: 20041008, end: 20041008
  2. BENADRYL [Concomitant]
     Indication: PREMEDICATION
     Route: 048
  3. ANZEMET [Concomitant]
     Indication: PREMEDICATION
     Route: 048
  4. DECADRON [Concomitant]
     Indication: PREMEDICATION
     Route: 048

REACTIONS (1)
  - EXTRAVASATION [None]
